FAERS Safety Report 23324188 (Version 2)
Quarter: 2023Q4

REPORT INFORMATION
  Report Type: Spontaneous
  Country: US (occurrence: US)
  Receive Date: 20231221
  Receipt Date: 20231227
  Transmission Date: 20240110
  Serious: Yes (Other)
  Sender: FDA-Public Use
  Company Number: US-002147023-NVSC2023US267152

PATIENT

DRUGS (1)
  1. PAZOPANIB [Suspect]
     Active Substance: PAZOPANIB
     Indication: Thyroid cancer
     Dosage: SECONDLINE THERAPY
     Route: 065

REACTIONS (3)
  - Thyroid cancer [Unknown]
  - Malignant neoplasm progression [Unknown]
  - Off label use [Unknown]
